FAERS Safety Report 9153881 (Version 1)
Quarter: 2013Q1

REPORT INFORMATION
  Report Type: Spontaneous
  Country: US (occurrence: None)
  Receive Date: 20130308
  Receipt Date: 20130308
  Transmission Date: 20140127
  Serious: Yes (Other)
  Sender: FDA-Public Use
  Company Number: None

PATIENT
  Age: 23 Year
  Sex: Male
  Weight: 95.26 kg

DRUGS (2)
  1. HYDROCODONE/APAP [Suspect]
     Indication: MUSCULOSKELETAL PAIN
     Dosage: 1 PILL Q 6 HOURS PRN PO
     Route: 048
     Dates: start: 20130211, end: 20130214
  2. CYCLOBENZAPRINE [Suspect]
     Dosage: 1 PILL 3X/DAY  PRN PO
     Route: 048
     Dates: start: 20130211, end: 20130305

REACTIONS (4)
  - Muscle strain [None]
  - Orthostatic intolerance [None]
  - Dehydration [None]
  - Sinus tachycardia [None]
